FAERS Safety Report 6611668-3 (Version None)
Quarter: 2010Q1

REPORT INFORMATION
  Report Type: 
  Country: None (occurrence: None)
  Receive Date: 20100303
  Receipt Date: 20100224
  Transmission Date: 20100710
  Serious: Yes (Other)
  Sender: FDA-Public Use
  Company Number: JP-BAYER-200911195BYL

PATIENT
  Age: 39 Year
  Sex: Male
  Weight: 71 kg

DRUGS (15)
  1. FLUDARA [Suspect]
     Indication: DIFFUSE LARGE B-CELL LYMPHOMA STAGE III
     Dosage: AS USED: 44 MG  UNIT DOSE: 500 MG
     Route: 042
     Dates: start: 20080925, end: 20080929
  2. ALKERAN [Suspect]
     Indication: DIFFUSE LARGE B-CELL LYMPHOMA STAGE III
     Dosage: AS USED: 120 MG
     Route: 042
     Dates: start: 20080928, end: 20080929
  3. PROGRAF [Concomitant]
     Indication: PROPHYLAXIS AGAINST GRAFT VERSUS HOST DISEASE
     Dosage: AS USED: 1.3 MG
     Route: 042
     Dates: start: 20080930, end: 20081104
  4. PROGRAF [Concomitant]
     Dosage: AS USED: 2.4 MG
     Route: 048
     Dates: start: 20081104
  5. METHOTREXATE [Concomitant]
     Indication: PROPHYLAXIS AGAINST GRAFT VERSUS HOST DISEASE
     Dosage: AS USED: 17 MG
     Route: 042
     Dates: start: 20081004, end: 20081007
  6. METHOTREXATE [Concomitant]
     Dosage: AS USED: 25 MG
     Route: 042
     Dates: start: 20081002, end: 20081002
  7. FUNGUARD [Concomitant]
     Indication: INFECTION PROPHYLAXIS
  8. VICCLOX [Concomitant]
     Indication: INFECTION PROPHYLAXIS
     Dosage: AS USED: 750 MG
     Route: 042
     Dates: start: 20081013, end: 20081020
  9. CRAVIT [Concomitant]
     Indication: INFECTION PROPHYLAXIS
     Dosage: AS USED: 300 MG  UNIT DOSE: 100 G
     Route: 048
     Dates: start: 20080923
  10. ZOVIRAX [Concomitant]
     Indication: INFECTION PROPHYLAXIS
     Dosage: AS USED: 1000 MG
     Route: 048
     Dates: start: 20080924, end: 20081105
  11. DIFLUCAN [Concomitant]
     Indication: INFECTION PROPHYLAXIS
     Dosage: AS USED: 400 MG
     Route: 048
     Dates: start: 20081030
  12. BAKTAR [Concomitant]
     Indication: INFECTION PROPHYLAXIS
     Dosage: TOTAL DAILY DOSE: 2 DF  UNIT DOSE: 1 DF
     Route: 048
     Dates: start: 20081104
  13. CONCENTRATED RED CELLS [Concomitant]
     Indication: PACKED RED BLOOD CELL TRANSFUSION
     Route: 042
     Dates: start: 20081004, end: 20081025
  14. PLATELETS [Concomitant]
     Indication: PLATELET TRANSFUSION
     Route: 042
     Dates: start: 20080929, end: 20081018
  15. MELPHALAN [Concomitant]

REACTIONS (5)
  - FEBRILE NEUTROPENIA [None]
  - NAUSEA [None]
  - NEUTROPHIL COUNT DECREASED [None]
  - OROPHARYNGEAL PAIN [None]
  - STOMATITIS [None]
